FAERS Safety Report 20507130 (Version 1)
Quarter: 2022Q1

REPORT INFORMATION
  Report Type: Spontaneous
  Country: US (occurrence: US)
  Receive Date: 20220223
  Receipt Date: 20220223
  Transmission Date: 20220423
  Serious: No
  Sender: FDA-Public Use
  Company Number: US-PERRIGO-21US033086

PATIENT
  Age: 86 Year
  Sex: Female
  Weight: 68.027 kg

DRUGS (2)
  1. DICLOFENAC SODIUM [Suspect]
     Active Substance: DICLOFENAC SODIUM
     Indication: Arthritis
     Dosage: UNKNOWN, UNKNOWN
     Route: 061
     Dates: start: 20211201, end: 20211215
  2. LIPID MODIFYING AGENTS, PLAIN [Concomitant]
     Indication: Blood cholesterol
     Dosage: 3 TIMES PER WEEK
     Route: 065

REACTIONS (2)
  - Drug ineffective [Unknown]
  - Incorrect product administration duration [Recovered/Resolved]

NARRATIVE: CASE EVENT DATE: 20211201
